FAERS Safety Report 5239215-1 (Version None)
Quarter: 2007Q1

REPORT INFORMATION
  Report Type: 
  Country: None (occurrence: None)
  Receive Date: 20070212
  Receipt Date: 20070201
  Transmission Date: 20070707
  Serious: Yes (Death, Hospitalization)
  Sender: FDA-Public Use
  Company Number: GXKR2007HK01404

PATIENT
  Age: 74 Year
  Sex: Male

DRUGS (2)
  1. CLARITHROMYCIN [Suspect]
     Indication: PNEUMONIA
     Dosage: 250 MG, BID, ORAL
     Route: 048
  2. COLCHICINE (COLCHICINE) [Suspect]
     Indication: GOUT
     Dosage: 0.5 MG, TID, ORAL
     Route: 048

REACTIONS (8)
  - DRUG INTERACTION [None]
  - DRUG TOXICITY [None]
  - GOUT [None]
  - NAUSEA [None]
  - PANCYTOPENIA [None]
  - PNEUMONIA [None]
  - RENAL FAILURE ACUTE [None]
  - VOMITING [None]
